FAERS Safety Report 8726061 (Version 4)
Quarter: 2012Q4

REPORT INFORMATION
  Report Type: 
  Country: US (occurrence: US)
  Receive Date: 20120816
  Receipt Date: 20121214
  Transmission Date: 20130627
  Serious: Yes (Other)
  Sender: FDA-Public Use
  Company Number: US-JNJFOC-20120805168

PATIENT

DRUGS (8)
  1. DOXORUBICIN [Suspect]
     Indication: ACUTE LYMPHOCYTIC LEUKAEMIA
     Dosage: over 15-30 minutes on day 1
     Route: 042
  2. BORTEZOMIB [Suspect]
     Indication: ACUTE LYMPHOCYTIC LEUKAEMIA
     Dosage: by push on days 1, 4, 8, and 11.
     Route: 042
  3. DEXAMETHASONE [Suspect]
     Indication: ACUTE LYMPHOCYTIC LEUKAEMIA
     Dosage: divided into 2 doses was given orally for 14 consecutive days
     Route: 048
  4. VINCRISTINE [Suspect]
     Indication: ACUTE LYMPHOCYTIC LEUKAEMIA
     Dosage: 2 mg maximum dose by push on day 1, days 8, 15 and 22
     Route: 042
  5. PEG-ASPARAGINASE [Suspect]
     Indication: ACUTE LYMPHOCYTIC LEUKAEMIA
     Dosage: 2500 units/m2/dose was given as 4 weekly doses.
     Route: 030
  6. CYTARABINE [Suspect]
     Indication: ACUTE LYMPHOCYTIC LEUKAEMIA
     Dosage: on day 1 or days 8, 15 and 22
     Route: 037
  7. METHOTREXATE [Suspect]
     Indication: ACUTE LYMPHOCYTIC LEUKAEMIA
     Dosage: on day 15 or days 8, 15 and 22
     Route: 037
  8. HYDROCORTISONE [Suspect]
     Indication: ACUTE LYMPHOCYTIC LEUKAEMIA
     Dosage: on day 15 or days 8, 15 and 22
     Route: 037

REACTIONS (3)
  - Encephalopathy [Recovering/Resolving]
  - Adrenal insufficiency [Recovering/Resolving]
  - Off label use [Unknown]
